FAERS Safety Report 7125874-5 (Version None)
Quarter: 2010Q4

REPORT INFORMATION
  Report Type: 
  Country: None (occurrence: None)
  Receive Date: 20101129
  Receipt Date: 20100903
  Transmission Date: 20110411
  Serious: No
  Sender: FDA-Public Use
  Company Number: US-MYLANLABS-2010S1016454

PATIENT
  Age: 63 Year
  Sex: Male
  Weight: 140.62 kg

DRUGS (6)
  1. VALACYCLOVIR HYDROCHLORIDE [Suspect]
     Indication: HERPES VIRUS INFECTION
     Route: 048
     Dates: start: 20100701, end: 20100801
  2. VALACYCLOVIR HYDROCHLORIDE [Suspect]
     Route: 048
     Dates: start: 20100801
  3. ACTOS [Concomitant]
     Indication: TYPE 2 DIABETES MELLITUS
     Route: 048
  4. SYNTHROID [Concomitant]
     Indication: THYROID DISORDER
     Route: 048
  5. HYDROCODONE [Concomitant]
     Indication: BACK PAIN
     Route: 048
  6. SPIRONOLACTONE [Concomitant]
     Route: 048

REACTIONS (5)
  - CONDITION AGGRAVATED [None]
  - DRUG INEFFECTIVE [None]
  - HERPES VIRUS INFECTION [None]
  - PERIPROCTITIS [None]
  - TINNITUS [None]
